FAERS Safety Report 16023553 (Version 1)
Quarter: 2019Q1

REPORT INFORMATION
  Report Type: Spontaneous
  Country: US (occurrence: US)
  Receive Date: 20190301
  Receipt Date: 20190301
  Transmission Date: 20190418
  Serious: Yes (Hospitalization, Other)
  Sender: FDA-Public Use
  Company Number: US-009507513-1902USA008513

PATIENT
  Age: 67 Year
  Sex: Female

DRUGS (2)
  1. ALENDRONATE SODIUM / CHOLCALCIFEROL TABLETS [Suspect]
     Active Substance: ALENDRONATE SODIUM\CHOLECALCIFEROL
     Indication: OSTEOPOROSIS PROPHYLAXIS
     Dosage: 1  TABLET, ONCE A WEEK
     Route: 048
     Dates: start: 201612, end: 201810
  2. ABALOPARATIDE [Concomitant]
     Active Substance: ABALOPARATIDE

REACTIONS (4)
  - Pain in extremity [Not Recovered/Not Resolved]
  - Femur fracture [Not Recovered/Not Resolved]
  - Femur fracture [Not Recovered/Not Resolved]
  - Arthralgia [Not Recovered/Not Resolved]

NARRATIVE: CASE EVENT DATE: 20180618
